FAERS Safety Report 25124511 (Version 1)
Quarter: 2025Q1

REPORT INFORMATION
  Report Type: Spontaneous
  Country: US (occurrence: US)
  Receive Date: 20250326
  Receipt Date: 20250326
  Transmission Date: 20250409
  Serious: Yes (Other)
  Sender: AMERICAN REGENT
  Company Number: US-AMERICAN REGENT INC-2025001232

PATIENT
  Age: 63 Year
  Sex: Female

DRUGS (7)
  1. NICARDIPINE HYDROCHLORIDE [Suspect]
     Active Substance: NICARDIPINE HYDROCHLORIDE
     Indication: Hypertension
     Route: 042
  2. OXYGEN [Concomitant]
     Active Substance: OXYGEN
     Indication: Oxygen therapy
     Route: 045
  3. OXYGEN [Concomitant]
     Active Substance: OXYGEN
     Route: 045
  4. OXYGEN [Concomitant]
     Active Substance: OXYGEN
     Route: 045
  5. OXYGEN [Concomitant]
     Active Substance: OXYGEN
     Route: 045
  6. OXYGEN [Concomitant]
     Active Substance: OXYGEN
     Route: 045
  7. OXYGEN [Concomitant]
     Active Substance: OXYGEN
     Route: 045

REACTIONS (1)
  - Respiratory failure [Recovered/Resolved]
